FAERS Safety Report 8495777-2 (Version None)
Quarter: 2012Q2

REPORT INFORMATION
  Report Type: 
  Country: None (occurrence: None)
  Receive Date: 20120628
  Receipt Date: 20120618
  Transmission Date: 20120825
  Serious: Yes (Other)
  Sender: FDA-Public Use
  Company Number: 2012P1027108

PATIENT
  Age: 17 Year
  Sex: Female
  Weight: 59.4212 kg

DRUGS (2)
  1. ZITNROMAX [Concomitant]
  2. PREDNISONE TABLETS USP 10MG (NO PREF. NAME) [Suspect]
     Indication: PHARYNGITIS STREPTOCOCCAL
     Dosage: 30 MG;X1
     Dates: start: 20120509, end: 20120509

REACTIONS (1)
  - CHORIORETINOPATHY [None]
